FAERS Safety Report 7459811-0 (Version None)
Quarter: 2011Q2

REPORT INFORMATION
  Report Type: 
  Country: None (occurrence: None)
  Receive Date: 20110505
  Receipt Date: 20110422
  Transmission Date: 20111010
  Serious: Yes (Death, Hospitalization)
  Sender: FDA-Public Use
  Company Number: US-CELGENEUS-163-C5013-11012152

PATIENT
  Sex: Male
  Weight: 95 kg

DRUGS (43)
  1. ARTIFICIAL TEARS [Concomitant]
     Dosage: .3 PERCENT
     Route: 065
  2. HYPROMELLOSE [Concomitant]
     Route: 065
  3. POTASSIUM [Concomitant]
     Dosage: 10 MILLIEQUIVALENTS
     Route: 065
  4. FLUTICASONE PROPIONATE [Concomitant]
     Dosage: 220 MICROGRAM
     Route: 065
  5. LENALIDOMIDE [Suspect]
     Dosage: 10 MILLIGRAM
     Route: 048
     Dates: start: 20101227, end: 20110102
  6. CYPROHEPTADINE HCL [Concomitant]
     Dosage: 4 MILLIGRAM
     Route: 048
  7. DILTIAZEM CD [Concomitant]
     Dosage: 240 MILLIGRAM
     Route: 051
     Dates: start: 20110101
  8. VITAMIN B6 [Concomitant]
     Dosage: 100 MILLIGRAM
     Route: 065
  9. ASPIRIN [Concomitant]
     Dosage: 325 MILLIGRAM
     Route: 065
  10. DULCOLAX [Concomitant]
     Dosage: 10 MILLIGRAM
     Route: 054
  11. ALLEGRA [Concomitant]
     Dosage: 180 MILLIGRAM
     Route: 065
  12. GAS-X [Concomitant]
     Dosage: 125 MILLIGRAM
     Route: 065
  13. POTASSIUM [Concomitant]
     Dosage: 20 MILLIEQUIVALENTS
     Route: 065
  14. PROAIR HFA [Concomitant]
     Route: 065
  15. KLONOPIN [Concomitant]
     Dosage: 1 MILLIGRAM
     Route: 048
  16. GLUCOTROL [Concomitant]
     Dosage: 2.2 MILLIGRAM
     Route: 065
  17. SIMETHICONE [Concomitant]
     Dosage: 125 MILLIGRAM
     Route: 065
  18. CALCIUM WITH VITAMIN D [Concomitant]
     Dosage: 500 MILLIGRAM
     Route: 065
  19. CENTRUM SILVER [Concomitant]
     Dosage: 1 TABLET
     Route: 065
  20. PRILOSEC [Concomitant]
     Dosage: 20 MILLIGRAM
     Route: 065
  21. RANITIDINE [Concomitant]
     Dosage: 150 MILLIGRAM
     Route: 065
  22. CALCIUM CARBONATE [Concomitant]
     Dosage: 500 MILLIGRAM
     Route: 065
  23. AMBIEN [Concomitant]
     Dosage: 5-10 MG AS NEEDED
     Route: 065
  24. FEXOFENADINE [Concomitant]
     Dosage: 180 MILLIGRAM
     Route: 048
  25. FLOMAX [Concomitant]
     Dosage: .4 MILLIGRAM
     Route: 065
  26. IBUPROFEN [Concomitant]
     Dosage: 200 MILLIGRAM
     Route: 065
  27. DITROPAN [Concomitant]
     Dosage: 5 MILLIGRAM
     Route: 065
  28. OMEPRAZOLE [Concomitant]
     Dosage: 20 MILLIGRAM
     Route: 065
  29. ACETAMINOPHEN [Concomitant]
     Dosage: 500 MILLIGRAM
     Route: 065
  30. ASPIRIN [Concomitant]
     Dosage: 81 MILLIGRAM
     Route: 065
  31. DILTIAZEM CD [Concomitant]
     Indication: SUPRAVENTRICULAR TACHYCARDIA
     Dosage: 240 MILLIGRAM
     Route: 065
  32. DILTIAZEM CD [Concomitant]
     Dosage: 180 MILLIGRAM
     Route: 065
     Dates: start: 20110111
  33. COMPAZINE [Concomitant]
     Dosage: 10 MILLIGRAM
     Route: 065
  34. LORATADINE [Concomitant]
     Dosage: 10 MILLIGRAM
     Route: 048
  35. FLOVENT HFA [Concomitant]
     Dosage: 220 MICROGRAM
     Route: 065
  36. FUROSEMIDE [Concomitant]
     Dosage: 20 MILLIGRAM
     Route: 065
  37. RANITIDINE [Concomitant]
     Dosage: 300 MILLIGRAM
     Route: 048
  38. VITAMIN C [Concomitant]
     Dosage: 500 MILLIGRAM
     Route: 065
  39. ZYRTEC [Concomitant]
     Dosage: 10 MILLIGRAM
     Route: 065
  40. GLIPIZIDE [Concomitant]
     Dosage: 2.5 MILLIGRAM
     Route: 065
  41. LENALIDOMIDE [Suspect]
     Indication: NON-HODGKIN'S LYMPHOMA
     Dosage: 10 MILLIGRAM
     Route: 048
     Dates: start: 20101129
  42. CLONAZEPAM [Concomitant]
     Dosage: 1 MILLIGRAM
     Route: 065
  43. MULTI-VITAMINS [Concomitant]
     Route: 065

REACTIONS (7)
  - GASTROINTESTINAL HAEMORRHAGE [None]
  - MUSCULOSKELETAL PAIN [None]
  - SUPRAVENTRICULAR TACHYCARDIA [None]
  - CONSTIPATION [None]
  - PNEUMONIA [None]
  - NON-HODGKIN'S LYMPHOMA [None]
  - LOWER GASTROINTESTINAL HAEMORRHAGE [None]
